FAERS Safety Report 8573027-6 (Version None)
Quarter: 2012Q2

REPORT INFORMATION
  Report Type: 
  Country: None (occurrence: None)
  Receive Date: 20120423
  Receipt Date: 20091010
  Transmission Date: 20120825
  Serious: Yes (Other)
  Sender: FDA-Public Use
  Company Number: PHEH2009US12000

PATIENT
  Age: 68 Year
  Sex: Female

DRUGS (5)
  1. MULTIVITAMINS (ASCORBIC ACID, ERGOCALCIFEROL RIBOFLAVIN, THIAMINE HYDR [Concomitant]
  2. EXJADE [Suspect]
     Indication: THALASSAEMIA
     Dosage: 500 MG, BID, ORAL, ORAL
     Route: 048
     Dates: start: 20090911, end: 20090919
  3. DIOVAN HCT [Concomitant]
  4. ACETAMINOPHEN [Concomitant]
  5. CALCIUM CARBONATE [Concomitant]

REACTIONS (3)
  - PAIN [None]
  - BLOOD BILIRUBIN INCREASED [None]
  - DIZZINESS [None]
